FAERS Safety Report 8432014-9 (Version None)
Quarter: 2012Q2

REPORT INFORMATION
  Report Type: 
  Country: None (occurrence: None)
  Receive Date: 20120613
  Receipt Date: 20111003
  Transmission Date: 20120825
  Serious: No
  Sender: FDA-Public Use
  Company Number: US-ASTRAZENECA-2011SE59526

PATIENT
  Age: 51 Year
  Sex: Female
  Weight: 54.4 kg

DRUGS (2)
  1. RHINOCORT [Suspect]
     Indication: SINUS CONGESTION
     Dosage: ONES DAILY
     Route: 045
  2. LORATADINE [Concomitant]

REACTIONS (3)
  - THERAPEUTIC RESPONSE UNEXPECTED [None]
  - MIGRAINE [None]
  - ACTIVITIES OF DAILY LIVING IMPAIRED [None]
